FAERS Safety Report 9996081 (Version 1)
Quarter: 2014Q1

REPORT INFORMATION
  Report Type: Report from Study
  Country: US (occurrence: US)
  Receive Date: 20140311
  Receipt Date: 20140311
  Transmission Date: 20141002
  Serious: Yes (Life-Threatening)
  Sender: FDA-Public Use
  Company Number: US-GLAXOSMITHKLINE-A1064171A

PATIENT
  Age: 77 Year
  Sex: Male

DRUGS (11)
  1. OFATUMUMAB [Suspect]
     Indication: CHRONIC LYMPHOCYTIC LEUKAEMIA
     Dosage: 1000MG CYCLIC
     Route: 042
     Dates: start: 20130822
  2. INVESTIGATIONAL STUDY DRUG [Suspect]
     Indication: CHRONIC LYMPHOCYTIC LEUKAEMIA
     Dosage: 150MG TWICE PER DAY
     Route: 048
     Dates: start: 20130822
  3. ACYCLOVIR [Concomitant]
  4. ALLOPURINOL [Concomitant]
  5. DEXAMETHASONE [Concomitant]
  6. IMIQUIMOD [Concomitant]
  7. LEVOFLOXACIN [Concomitant]
  8. LORAZEPAM [Concomitant]
  9. NASONEX [Concomitant]
  10. NIZORAL [Concomitant]
  11. SULFAMETHOXAZOLE + TRIMETHOPRIM [Concomitant]

REACTIONS (3)
  - White blood cell count decreased [Not Recovered/Not Resolved]
  - Neutrophil count decreased [Not Recovered/Not Resolved]
  - Lymphocyte count decreased [Not Recovered/Not Resolved]
